FAERS Safety Report 11232143 (Version 1)
Quarter: 2015Q3

REPORT INFORMATION
  Report Type: Spontaneous
  Country: US (occurrence: US)
  Receive Date: 20150701
  Receipt Date: 20150701
  Transmission Date: 20151125
  Serious: No
  Sender: FDA-Public Use
  Company Number: US-PFIZER INC-2015215779

PATIENT
  Sex: Male

DRUGS (1)
  1. SILVADENE [Suspect]
     Active Substance: SILVER SULFADIAZINE
     Dosage: UNK

REACTIONS (1)
  - Oedema peripheral [Unknown]
